FAERS Safety Report 4586633-0 (Version None)
Quarter: 2005Q1

REPORT INFORMATION
  Report Type: 
  Country: None (occurrence: None)
  Receive Date: 20050218
  Receipt Date: 20040818
  Transmission Date: 20050727
  Serious: No
  Sender: FDA-Public Use
  Company Number: US-BRISTOL-MYERS SQUIBB COMPANY-12675443

PATIENT
  Age: 54 Year
  Sex: Female
  Weight: 69 kg

DRUGS (6)
  1. CARBOPLATIN [Suspect]
     Indication: OVARIAN CANCER
     Route: 042
     Dates: start: 20040817, end: 20040817
  2. TAXOL [Suspect]
     Indication: OVARIAN CANCER
     Route: 042
     Dates: start: 20040817, end: 20040817
  3. DECADRON [Concomitant]
     Indication: PREMEDICATION
     Dates: start: 20040817, end: 20040817
  4. BENADRYL [Concomitant]
     Indication: PREMEDICATION
     Dates: start: 20040817, end: 20040817
  5. KYTRIL [Concomitant]
     Indication: PREMEDICATION
     Dates: start: 20040817, end: 20040817
  6. TAGAMET [Concomitant]
     Indication: PREMEDICATION
     Dates: start: 20040817, end: 20040817

REACTIONS (1)
  - VITREOUS FLOATERS [None]
